FAERS Safety Report 5192699-X (Version None)
Quarter: 2006Q4

REPORT INFORMATION
  Report Type: 
  Country: None (occurrence: None)
  Receive Date: 20061220
  Receipt Date: 20061206
  Transmission Date: 20070319
  Serious: Yes (Hospitalization, Other)
  Sender: FDA-Public Use
  Company Number: 2006-02492

PATIENT
  Age: 52 Year
  Sex: Male
  Weight: 94 kg

DRUGS (3)
  1. VELCADE [Suspect]
     Indication: MULTIPLE MYELOMA
     Dosage: 2.85 MG, INTRAVENOUS
     Route: 042
     Dates: start: 20060630, end: 20060710
  2. GLUCOPHAGE [Concomitant]
  3. VITAMIN B1 AND B6 (THIAMINE, PYRIDOXINE) [Concomitant]

REACTIONS (3)
  - AMYOTROPHY [None]
  - CONDITION AGGRAVATED [None]
  - NEUROPATHY PERIPHERAL [None]
